FAERS Safety Report 9468686 (Version 1)
Quarter: 2013Q3

REPORT INFORMATION
  Report Type: Spontaneous
  Country: US (occurrence: None)
  Receive Date: 20130814
  Receipt Date: 20130814
  Transmission Date: 20140515
  Serious: Yes (Other)
  Sender: FDA-Public Use
  Company Number: 2013P1016472

PATIENT
  Age: 50 Year
  Sex: Female

DRUGS (2)
  1. INFUMORPH [Suspect]
     Indication: POST LAMINECTOMY SYNDROME
     Route: 037
  2. INFUMORPH [Suspect]
     Indication: PAIN
     Route: 037

REACTIONS (10)
  - Device malfunction [None]
  - Pain [None]
  - Vision blurred [None]
  - Abasia [None]
  - Blister [None]
  - Implant site swelling [None]
  - Local swelling [None]
  - Underdose [None]
  - Device alarm issue [None]
  - Thrombosis [None]
